FAERS Safety Report 4591269-1 (Version None)
Quarter: 2005Q1

REPORT INFORMATION
  Report Type: 
  Country: None (occurrence: None)
  Receive Date: 20050218
  Receipt Date: 20050209
  Transmission Date: 20050727
  Serious: Yes (Hospitalization)
  Sender: FDA-Public Use
  Company Number: 2005SE00572

PATIENT
  Age: 60 Year
  Sex: Male
  Weight: 56 kg

DRUGS (8)
  1. CANDESARTAN CILEXETIL [Suspect]
     Indication: DIABETIC NEPHROPATHY
     Dosage: 2 OR 4 MG (0-4 W) ( 1 IN 1 D)
     Dates: start: 20040901, end: 20040927
  2. CANDESARTAN CILEXETIL [Suspect]
     Indication: DIABETIC NEPHROPATHY
     Dosage: 2, 4 OR 8 MG (4- 8 W) (1 IN 1 D)
     Dates: start: 20040928, end: 20041025
  3. CANDESARTAN CILEXETIL [Suspect]
     Indication: DIABETIC NEPHROPATHY
     Dosage: 2, 4, 8, OR 16 MG (8- 96 W) (1 IN 1 D)
     Dates: start: 20041026, end: 20050122
  4. GLIMICRON [Concomitant]
  5. ATELEC [Concomitant]
  6. NO MATCH [Concomitant]
  7. CRAVIT [Concomitant]
  8. RIZABEN [Concomitant]

REACTIONS (2)
  - ACUTE MYOCARDIAL INFARCTION [None]
  - CARDIAC FAILURE ACUTE [None]
